FAERS Safety Report 4808728-6 (Version None)
Quarter: 2005Q4

REPORT INFORMATION
  Report Type: 
  Country: None (occurrence: None)
  Receive Date: 20051021
  Receipt Date: 20040122
  Transmission Date: 20060501
  Serious: No
  Sender: FDA-Public Use
  Company Number: EWC040237841

PATIENT
  Age: 49 Year
  Sex: Male

DRUGS (7)
  1. OLANZAPINE [Suspect]
     Indication: DEPRESSION
     Dosage: 2.5 MG/DAY
     Dates: start: 20010201, end: 20040115
  2. OLANZAPINE [Suspect]
     Indication: PERSONALITY DISORDER
     Dosage: 2.5 MG/DAY
     Dates: start: 20010201, end: 20040115
  3. PAROXETINE HCL [Concomitant]
  4. LORAZEPAM [Concomitant]
  5. TRAZODONE HCL [Concomitant]
  6. ANAFRANIL [Concomitant]
  7. EN (DELORAZEPAM) [Concomitant]

REACTIONS (6)
  - HYPERGLYCAEMIA [None]
  - LYMPHOCYTE COUNT INCREASED [None]
  - NEUTROPHIL COUNT INCREASED [None]
  - SUBCUTANEOUS ABSCESS [None]
  - WEIGHT INCREASED [None]
  - WHITE BLOOD CELL COUNT INCREASED [None]
